FAERS Safety Report 11903158 (Version 2)
Quarter: 2016Q1

REPORT INFORMATION
  Report Type: Spontaneous
  Country: US (occurrence: US)
  Receive Date: 20160108
  Receipt Date: 20160111
  Transmission Date: 20160526
  Serious: Yes (Death, Other)
  Sender: FDA-Public Use
  Company Number: US-GLAXOSMITHKLINE-US2016GSK001557

PATIENT
  Age: 49 Year
  Sex: Female

DRUGS (5)
  1. CLONAZEPAM. [Suspect]
     Active Substance: CLONAZEPAM
     Route: 048
  2. VENLAFAXINE [Suspect]
     Active Substance: VENLAFAXINE HYDROCHLORIDE
     Route: 048
  3. LAMOTRIGINE. [Suspect]
     Active Substance: LAMOTRIGINE
     Route: 048
  4. BUPROPION. [Suspect]
     Active Substance: BUPROPION
     Route: 048
  5. GABAPENTIN. [Suspect]
     Active Substance: GABAPENTIN
     Route: 048

REACTIONS (1)
  - Completed suicide [Fatal]
